FAERS Safety Report 8800700 (Version 2)
Quarter: 2012Q4

REPORT INFORMATION
  Report Type: 
  Country: US (occurrence: US)
  Receive Date: 20120921
  Receipt Date: 20121001
  Transmission Date: 20130627
  Serious: Yes (Other)
  Sender: FDA-Public Use
  Company Number: US-ASTRAZENECA-2012SE61353

PATIENT
  Age: 96 Year
  Sex: Female
  Weight: 36.3 kg

DRUGS (6)
  1. SEROQUEL [Suspect]
     Indication: DEMENTIA ALZHEIMER^S TYPE
     Route: 048
  2. ALPRAZOLAM [Suspect]
     Route: 048
     Dates: start: 20120622
  3. NAMENDA [Concomitant]
     Indication: DEMENTIA ALZHEIMER^S TYPE
  4. PLAVIX [Concomitant]
  5. MIRTAZAPINE [Concomitant]
     Indication: ANTIDEPRESSANT THERAPY
  6. CYPROHEPTADINE [Concomitant]

REACTIONS (13)
  - Drug withdrawal syndrome [Unknown]
  - Polyuria [Unknown]
  - Decreased appetite [Unknown]
  - Adverse event [Unknown]
  - Weight decreased [Unknown]
  - Movement disorder [Unknown]
  - Sedation [Recovered/Resolved]
  - Asthenia [Recovered/Resolved]
  - Movement disorder [Recovered/Resolved]
  - Vision blurred [Recovered/Resolved]
  - Somnolence [Recovered/Resolved]
  - Intentional drug misuse [Unknown]
  - Off label use [Unknown]
